FAERS Safety Report 4445783-X (Version None)
Quarter: 2004Q3

REPORT INFORMATION
  Report Type: 
  Country: None (occurrence: None)
  Receive Date: 20040910
  Receipt Date: 20040813
  Transmission Date: 20050211
  Serious: Yes (Other)
  Sender: FDA-Public Use
  Company Number: 200416122US

PATIENT
  Age: 63 Year
  Sex: Female
  Weight: 96 kg

DRUGS (4)
  1. KETEK [Suspect]
     Indication: SINUSITIS
  2. HYDROCHLOROTHIAZIDE [Concomitant]
  3. DIOVAN [Concomitant]
  4. ATENOLOL [Concomitant]

REACTIONS (1)
  - HYPERTENSION [None]
